FAERS Safety Report 7436387-5 (Version None)
Quarter: 2011Q2

REPORT INFORMATION
  Report Type: 
  Country: None (occurrence: None)
  Receive Date: 20110426
  Receipt Date: 20110415
  Transmission Date: 20111010
  Serious: No
  Sender: FDA-Public Use
  Company Number: US-BIOGENIDEC-2011BI012698

PATIENT
  Age: 55 Year
  Sex: Female

DRUGS (4)
  1. AVONEX [Concomitant]
     Route: 030
     Dates: start: 20080601
  2. AVONEX [Concomitant]
     Indication: MULTIPLE SCLEROSIS
     Route: 030
     Dates: start: 20040926
  3. AVONEX [Concomitant]
     Route: 030
     Dates: start: 20080801
  4. TYSABRI [Suspect]
     Indication: MULTIPLE SCLEROSIS
     Route: 042
     Dates: start: 20110318

REACTIONS (6)
  - WEIGHT INCREASED [None]
  - DEPRESSION [None]
  - FOOD CRAVING [None]
  - HUNGER [None]
  - NOCTURIA [None]
  - FATIGUE [None]
